FAERS Safety Report 8917074 (Version 3)
Quarter: 2012Q4

REPORT INFORMATION
  Report Type: 
  Country: GR (occurrence: GR)
  Receive Date: 20121120
  Receipt Date: 20121127
  Transmission Date: 20130627
  Serious: Yes (Death, Hospitalization, Other)
  Sender: FDA-Public Use
  Company Number: GR-AMGEN-GRCSP2012073839

PATIENT
  Age: 76 Year
  Sex: Female

DRUGS (4)
  1. PROLIA [Suspect]
     Indication: OSTEOPOROSIS
     Dosage: UNK
     Dates: start: 20120925
  2. LEXOTANIL [Concomitant]
     Dosage: UNK
     Dates: start: 2009
  3. SEROXAT [Concomitant]
     Dosage: UNK
     Dates: start: 2009
  4. EBIXA [Concomitant]
     Dosage: UNK
     Dates: start: 2009

REACTIONS (4)
  - Respiratory tract infection [Fatal]
  - Coma [Unknown]
  - Altered state of consciousness [Unknown]
  - Discomfort [Unknown]
